FAERS Safety Report 7770747-8 (Version None)
Quarter: 2011Q3

REPORT INFORMATION
  Report Type: 
  Country: None (occurrence: None)
  Receive Date: 20110922
  Receipt Date: 20101011
  Transmission Date: 20111222
  Serious: No
  Sender: FDA-Public Use
  Company Number: US-ASTRAZENECA-2010SE48041

PATIENT
  Age: 18 Year
  Sex: Female
  Weight: 56.7 kg

DRUGS (3)
  1. LEXAPRO [Concomitant]
  2. SEROQUEL [Suspect]
     Route: 048
  3. SEROQUEL [Suspect]
     Route: 048

REACTIONS (2)
  - DRUG PRESCRIBING ERROR [None]
  - SEDATION [None]
